FAERS Safety Report 9536454 (Version 1)
Quarter: 2013Q2

REPORT INFORMATION
  Report Type: Spontaneous
  Country: US (occurrence: None)
  Receive Date: 20130507
  Receipt Date: 20130507
  Transmission Date: 20140414
  Serious: No
  Sender: FDA-Public Use
  Company Number: PHEH2012US024224

PATIENT
  Age: 4 Year
  Sex: Female

DRUGS (4)
  1. AFINITOR (RAD) [Suspect]
     Route: 048
  2. LAMICTAL (LAMOTRIGINE) [Concomitant]
  3. MELATONIN (MELATONIN) [Concomitant]
  4. MIRALAX (MACOGOL) [Concomitant]

REACTIONS (2)
  - Sleep disorder [None]
  - Oral pain [None]
